FAERS Safety Report 7601602-1 (Version None)
Quarter: 2011Q3

REPORT INFORMATION
  Report Type: 
  Country: None (occurrence: None)
  Receive Date: 20110711
  Receipt Date: 20110629
  Transmission Date: 20111222
  Serious: Yes (Other)
  Sender: FDA-Public Use
  Company Number: PHHY2011AT35017

PATIENT
  Age: 86 Year
  Sex: Male
  Weight: 65 kg

DRUGS (8)
  1. ALLOSTAD [Concomitant]
     Indication: HYPERURICAEMIA
     Dosage: 300 MG, QD
     Route: 048
  2. TASIGNA [Suspect]
     Indication: CHRONIC MYELOID LEUKAEMIA
     Dosage: 800 MG, BID
     Route: 048
     Dates: start: 20080604, end: 20101102
  3. GREOSIN [Concomitant]
     Indication: HYPERCHOLESTEROLAEMIA
     Dosage: 20 MG, QD
  4. TRAZODONE HCL [Concomitant]
     Dosage: UNK
  5. AGILAN [Concomitant]
     Indication: HYPERPLASIA
     Dosage: 0.4 MG, QD
     Dates: end: 20101102
  6. MARCOUMAR [Concomitant]
     Dosage: UNK
     Dates: end: 20101102
  7. MEPRIL [Concomitant]
     Indication: HYPERTENSION
     Dosage: 5 MG, QD
  8. FAMOSAN [Concomitant]
     Indication: PROPHYLAXIS
     Dosage: 40 MG, QD
     Dates: end: 20101102

REACTIONS (2)
  - PERIPHERAL ARTERIAL OCCLUSIVE DISEASE [None]
  - BLOOD GLUCOSE INCREASED [None]
